FAERS Safety Report 6820983-X (Version None)
Quarter: 2010Q3

REPORT INFORMATION
  Report Type: 
  Country: None (occurrence: None)
  Receive Date: 20100707
  Receipt Date: 20071030
  Transmission Date: 20110219
  Serious: No
  Sender: FDA-Public Use
  Company Number: US-PFIZER INC-2007075419

PATIENT
  Sex: Male
  Weight: 68.6 kg

DRUGS (8)
  1. ZOLOFT [Suspect]
     Indication: DEPRESSION
     Dates: start: 20070620
  2. ZOLOFT [Suspect]
     Indication: PANIC DISORDER
  3. RISPERDAL [Concomitant]
  4. LITHIUM CARBONATE [Concomitant]
  5. WELLBUTRIN [Concomitant]
  6. PROPRANOLOL HYDROCHLORIDE [Concomitant]
  7. ATIVAN [Concomitant]
  8. LITHIUM CARBONATE [Concomitant]

REACTIONS (2)
  - INFLUENZA LIKE ILLNESS [None]
  - MALAISE [None]
